FAERS Safety Report 17328760 (Version 2)
Quarter: 2020Q4

REPORT INFORMATION
  Report Type: Report from Study
  Country: GR (occurrence: GR)
  Receive Date: 20200127
  Receipt Date: 20201125
  Transmission Date: 20210113
  Serious: Yes (Other)
  Sender: FDA-Public Use
  Company Number: GR-MYLANLABS-2020M1008555

PATIENT
  Sex: Female

DRUGS (2)
  1. CLIFT (GLATIRAMER ACETATE) [Suspect]
     Active Substance: GLATIRAMER ACETATE
     Dosage: 20 MILLIGRAM, QD,DAILY
     Route: 058
     Dates: start: 202002
  2. CLIFT (GLATIRAMER ACETATE) [Suspect]
     Active Substance: GLATIRAMER ACETATE
     Indication: MULTIPLE SCLEROSIS
     Dosage: 20 MILLIGRAM, QD,DAILY
     Route: 058
     Dates: start: 20180222, end: 201912

REACTIONS (1)
  - Drug ineffective [Unknown]
